FAERS Safety Report 7715007-6 (Version None)
Quarter: 2011Q3

REPORT INFORMATION
  Report Type: 
  Country: None (occurrence: None)
  Receive Date: 20110829
  Receipt Date: 20110412
  Transmission Date: 20111222
  Serious: No
  Sender: FDA-Public Use
  Company Number: US-ASTRAZENECA-2011SE20874

PATIENT
  Age: 45 Year
  Sex: Female

DRUGS (2)
  1. BLOOD PRESSURE MEDICATION [Concomitant]
  2. VIMOVO [Suspect]
     Dosage: 500MG/20MG
     Route: 048

REACTIONS (1)
  - RASH GENERALISED [None]
